FAERS Safety Report 6158426-4 (Version None)
Quarter: 2009Q2

REPORT INFORMATION
  Report Type: 
  Country: None (occurrence: None)
  Receive Date: 20090417
  Receipt Date: 20090416
  Transmission Date: 20091009
  Serious: Yes (Disabling, Other)
  Sender: FDA-Public Use
  Company Number: GB-BAYER-200813322BNE

PATIENT
  Sex: Male
  Weight: 64 kg

DRUGS (1)
  1. CIPROFLOXACIN HCL [Suspect]
     Indication: PROSTATITIS
     Dosage: AS USED: 500 MG
     Route: 048
     Dates: start: 20080527, end: 20080529

REACTIONS (17)
  - ABASIA [None]
  - ARTHRALGIA [None]
  - BONE PAIN [None]
  - DISORIENTATION [None]
  - DYSSTASIA [None]
  - HYPERHIDROSIS [None]
  - INSOMNIA [None]
  - JOINT RANGE OF MOTION DECREASED [None]
  - JOINT STIFFNESS [None]
  - MUSCULOSKELETAL STIFFNESS [None]
  - MYALGIA [None]
  - PANIC ATTACK [None]
  - ROTATOR CUFF SYNDROME [None]
  - TENDON PAIN [None]
  - TREMOR [None]
  - VISION BLURRED [None]
  - VISUAL IMPAIRMENT [None]
